FAERS Safety Report 25379005 (Version 1)
Quarter: 2025Q2

REPORT INFORMATION
  Report Type: Spontaneous
  Country: US (occurrence: None)
  Receive Date: 20250529
  Receipt Date: 20250529
  Transmission Date: 20250716
  Serious: Yes (Disabling, Other)
  Sender: FDA-CTU
  Company Number: None

PATIENT
  Age: 23 Year
  Sex: Male
  Weight: 55 kg

DRUGS (1)
  1. CITALOPRAM [Suspect]
     Active Substance: CITALOPRAM
     Indication: Depression
     Dates: start: 20101224, end: 20110430

REACTIONS (37)
  - Drug ineffective [None]
  - Genital hypoaesthesia [None]
  - Sexual dysfunction [None]
  - Loss of libido [None]
  - Anorgasmia [None]
  - Ejaculation disorder [None]
  - Social avoidant behaviour [None]
  - Daydreaming [None]
  - Cognitive disorder [None]
  - Brain fog [None]
  - Asthenia [None]
  - Fatigue [None]
  - Disturbance in attention [None]
  - Anger [None]
  - Abnormal behaviour [None]
  - Mouth ulceration [None]
  - Migraine with aura [None]
  - Headache [None]
  - Decreased appetite [None]
  - Gastrointestinal disorder [None]
  - Constipation [None]
  - Diarrhoea [None]
  - Nausea [None]
  - Vomiting [None]
  - Pollakiuria [None]
  - Pyrexia [None]
  - Feeling cold [None]
  - Chills [None]
  - Depersonalisation/derealisation disorder [None]
  - Anxiety [None]
  - Paranoia [None]
  - Nightmare [None]
  - Insomnia [None]
  - Mood altered [None]
  - Dizziness [None]
  - Paraesthesia [None]
  - Suicidal ideation [None]

NARRATIVE: CASE EVENT DATE: 20110430
